FAERS Safety Report 21902662 (Version 1)
Quarter: 2023Q1

REPORT INFORMATION
  Report Type: Report from Study
  Country: BR (occurrence: BR)
  Receive Date: 20230124
  Receipt Date: 20230124
  Transmission Date: 20230417
  Serious: Yes (Other)
  Sender: FDA-Public Use
  Company Number: BR-002147023-NVSC2023BR014224

PATIENT
  Age: 80 Year
  Sex: Female

DRUGS (2)
  1. TAFINLAR [Suspect]
     Active Substance: DABRAFENIB MESYLATE
     Indication: Product used for unknown indication
     Dosage: UNK (DOES NOT HAVE MORE THE MEDICATION)
     Route: 065
     Dates: start: 202207
  2. MEKINIST [Suspect]
     Active Substance: TRAMETINIB DIMETHYL SULFOXIDE
     Indication: Product used for unknown indication
     Dosage: UNK (DOES NOT HAVE MORE THE MEDICATION)
     Route: 065
     Dates: start: 202207

REACTIONS (10)
  - Choking [Recovered/Resolved]
  - Immunodeficiency [Unknown]
  - Weight decreased [Unknown]
  - Bronchitis [Not Recovered/Not Resolved]
  - Arteriosclerosis [Recovered/Resolved]
  - Feeling abnormal [Unknown]
  - Asthenia [Unknown]
  - Dyspnoea [Recovered/Resolved]
  - Malaise [Recovered/Resolved]
  - Peripheral swelling [Not Recovered/Not Resolved]

NARRATIVE: CASE EVENT DATE: 20220901
